FAERS Safety Report 6042227-1 (Version None)
Quarter: 2009Q1

REPORT INFORMATION
  Report Type: 
  Country: None (occurrence: None)
  Receive Date: 20090116
  Receipt Date: 20090105
  Transmission Date: 20090719
  Serious: Yes (Hospitalization, Other)
  Sender: FDA-Public Use
  Company Number: GB-JNJFOC-20080804806

PATIENT
  Age: 60 Year
  Sex: Male
  Weight: 76.2 kg

DRUGS (3)
  1. TRAMADOL HYDROCHLORIDE [Suspect]
     Indication: BACK PAIN
     Route: 065
  2. LYRICA [Interacting]
     Indication: BACK PAIN
     Route: 048
  3. LYRICA [Interacting]
     Indication: SPINAL COLUMN STENOSIS
     Route: 048

REACTIONS (9)
  - CHEST DISCOMFORT [None]
  - DIZZINESS [None]
  - DRUG INTERACTION [None]
  - HYPERHIDROSIS [None]
  - MALAISE [None]
  - PAIN [None]
  - PRESYNCOPE [None]
  - TACHYCARDIA [None]
  - TREMOR [None]
